FAERS Safety Report 4722993-5 (Version None)
Quarter: 2005Q3

REPORT INFORMATION
  Report Type: 
  Country: None (occurrence: None)
  Receive Date: 20050722
  Receipt Date: 20050602
  Transmission Date: 20060218
  Serious: Yes (Life-Threatening, Disabling)
  Sender: FDA-Public Use
  Company Number: DE-MERCK-0506DEU00035

PATIENT
  Age: 65 Year
  Sex: Male

DRUGS (7)
  1. VIOXX [Suspect]
     Indication: PAIN
     Route: 048
     Dates: start: 20031009, end: 20031001
  2. VIOXX [Suspect]
     Route: 048
     Dates: start: 20031001, end: 20041001
  3. VIOXX [Suspect]
     Indication: PELVIC FRACTURE
     Route: 048
     Dates: start: 20031009, end: 20031001
  4. VIOXX [Suspect]
     Route: 048
     Dates: start: 20031001, end: 20041001
  5. RALOXIFENE HYDROCHLORIDE [Concomitant]
     Indication: OSTEOPOROSIS
     Route: 048
  6. ESOMEPRAZOLE MAGNESIUM [Concomitant]
     Route: 048
  7. FINASTERIDE [Concomitant]
     Route: 048

REACTIONS (4)
  - ANGINA PECTORIS [None]
  - EMOTIONAL DISTRESS [None]
  - HYPERTENSION [None]
  - MYOCARDIAL INFARCTION [None]
